FAERS Safety Report 20760802 (Version 4)
Quarter: 2023Q1

REPORT INFORMATION
  Report Type: Report from Study
  Country: CO (occurrence: CO)
  Receive Date: 20220428
  Receipt Date: 20230304
  Transmission Date: 20230417
  Serious: Yes (Other)
  Sender: FDA-Public Use
  Company Number: CO-ABBVIE-22K-036-4307373-00

PATIENT
  Sex: Male

DRUGS (3)
  1. HUMIRA [Suspect]
     Active Substance: ADALIMUMAB
     Indication: Ankylosing spondylitis
     Route: 058
     Dates: start: 2022, end: 20220129
  2. HUMIRA [Suspect]
     Active Substance: ADALIMUMAB
     Route: 058
     Dates: start: 2022
  3. HUMIRA [Suspect]
     Active Substance: ADALIMUMAB
     Route: 058
     Dates: end: 20220821

REACTIONS (30)
  - Fracture [Recovering/Resolving]
  - Clavicle fracture [Recovering/Resolving]
  - Skin plaque [Recovering/Resolving]
  - Allergic pharyngitis [Recovered/Resolved]
  - Sneezing [Recovering/Resolving]
  - Discouragement [Recovered/Resolved]
  - Rhinorrhoea [Recovering/Resolving]
  - Limb injury [Recovering/Resolving]
  - Discouragement [Recovering/Resolving]
  - Pyrexia [Recovering/Resolving]
  - Nasal congestion [Not Recovered/Not Resolved]
  - Influenza [Recovering/Resolving]
  - Cough [Recovered/Resolved]
  - Influenza [Not Recovered/Not Resolved]
  - Wound [Recovered/Resolved]
  - Asthenia [Recovering/Resolving]
  - Road traffic accident [Recovering/Resolving]
  - Oral herpes [Recovered/Resolved]
  - Postoperative wound infection [Recovering/Resolving]
  - Cheilitis [Recovering/Resolving]
  - Purulent discharge [Recovering/Resolving]
  - Rhinitis [Recovering/Resolving]
  - Influenza like illness [Recovered/Resolved]
  - Headache [Recovered/Resolved]
  - Oral herpes [Recovered/Resolved]
  - Influenza [Recovering/Resolving]
  - Nasal discomfort [Recovering/Resolving]
  - Oral herpes [Recovered/Resolved]
  - Skin laceration [Unknown]
  - Oral discomfort [Unknown]

NARRATIVE: CASE EVENT DATE: 20220101
